FAERS Safety Report 12060833 (Version 1)
Quarter: 2016Q1

REPORT INFORMATION
  Report Type: Spontaneous
  Country: US (occurrence: US)
  Receive Date: 20160210
  Receipt Date: 20160210
  Transmission Date: 20160526
  Serious: Yes (Other)
  Sender: FDA-Public Use
  Company Number: US-JNJFOC-20160202097

PATIENT
  Sex: Female
  Weight: 63.5 kg

DRUGS (5)
  1. TOPAMAX [Suspect]
     Active Substance: TOPIRAMATE
     Indication: PAIN PROPHYLAXIS
     Route: 048
  2. TOPIRAMATE. [Suspect]
     Active Substance: TOPIRAMATE
     Indication: PAIN PROPHYLAXIS
     Route: 048
  3. TOPAMAX [Suspect]
     Active Substance: TOPIRAMATE
     Indication: PAIN PROPHYLAXIS
     Route: 048
  4. TOPAMAX [Suspect]
     Active Substance: TOPIRAMATE
     Indication: PAIN PROPHYLAXIS
     Route: 048
  5. TOPIRAMATE. [Suspect]
     Active Substance: TOPIRAMATE
     Indication: PAIN PROPHYLAXIS
     Route: 048

REACTIONS (10)
  - Hypersensitivity [Not Recovered/Not Resolved]
  - Constipation [Unknown]
  - Spinal fusion surgery [Unknown]
  - Laryngotracheal oedema [Recovered/Resolved]
  - Muscle spasms [Unknown]
  - Respiratory disorder [Not Recovered/Not Resolved]
  - Adverse event [Unknown]
  - Food allergy [Not Recovered/Not Resolved]
  - Malaise [Unknown]
  - Sinus disorder [Not Recovered/Not Resolved]

NARRATIVE: CASE EVENT DATE: 2012
